FAERS Safety Report 6761985-1 (Version None)
Quarter: 2010Q2

REPORT INFORMATION
  Report Type: 
  Country: None (occurrence: None)
  Receive Date: 20100609
  Receipt Date: 20100526
  Transmission Date: 20101027
  Serious: Yes (Hospitalization, Other)
  Sender: FDA-Public Use
  Company Number: US-ELI_LILLY_AND_COMPANY-US201005007659

PATIENT
  Sex: Female

DRUGS (6)
  1. EVISTA [Suspect]
     Indication: OSTEOPOROSIS
     Dosage: 60 MG, DAILY (1/D)
     Dates: start: 20040101, end: 20080101
  2. CALCIUM W/VITAMIN D NOS [Concomitant]
  3. VITAMIN TAB [Concomitant]
  4. FISH OIL [Concomitant]
  5. COD LIVER OIL [Concomitant]
  6. ACTONEL [Concomitant]

REACTIONS (6)
  - ARTHROPATHY [None]
  - BONE DISORDER [None]
  - GINGIVAL PAIN [None]
  - INTENTIONAL DRUG MISUSE [None]
  - OSTEONECROSIS OF JAW [None]
  - OSTEOPOROSIS [None]
